FAERS Safety Report 4933918-1 (Version None)
Quarter: 2006Q1

REPORT INFORMATION
  Report Type: 
  Country: None (occurrence: None)
  Receive Date: 20060303
  Receipt Date: 20060217
  Transmission Date: 20060701
  Serious: Yes (Death)
  Sender: FDA-Public Use
  Company Number: US-2006-003948

PATIENT
  Sex: Female

DRUGS (1)
  1. YASMIN [Suspect]
     Dosage: 1 TAB (S), UNK, ORAL
     Route: 048

REACTIONS (1)
  - ILL-DEFINED DISORDER [None]
